FAERS Safety Report 12289307 (Version 3)
Quarter: 2016Q3

REPORT INFORMATION
  Report Type: Report from Study
  Country: US (occurrence: US)
  Receive Date: 20160421
  Receipt Date: 20160910
  Transmission Date: 20161109
  Serious: Yes (Hospitalization, Other)
  Sender: FDA-Public Use
  Company Number: US-AMGEN-USASL2016048596

PATIENT
  Age: 69 Year
  Sex: Female
  Weight: 95.69 kg

DRUGS (6)
  1. VITAMIN D [Concomitant]
     Active Substance: CHOLECALCIFEROL
     Dosage: 400 UNK, UNK
  2. LASIX [Concomitant]
     Active Substance: FUROSEMIDE
     Indication: OEDEMA PERIPHERAL
  3. CALCIUM [Concomitant]
     Active Substance: CALCIUM
     Dosage: 1200 UNK, UNK
  4. TETANUS TOXOID ADSORBED [Concomitant]
     Active Substance: CLOSTRIDIUM TETANI TOXOID ANTIGEN (FORMALDEHYDE INACTIVATED)
     Dosage: UNK
  5. PHENYTOIN. [Concomitant]
     Active Substance: PHENYTOIN
     Dosage: UNK
  6. PROLIA [Suspect]
     Active Substance: DENOSUMAB
     Indication: OSTEOPOROSIS POSTMENOPAUSAL
     Dosage: 60 MG, Q6MO
     Route: 058

REACTIONS (10)
  - Vitamin D decreased [Recovering/Resolving]
  - White blood cell count abnormal [Recovering/Resolving]
  - Atrial fibrillation [Recovering/Resolving]
  - Blood calcium decreased [Recovered/Resolved]
  - Hand deformity [Recovering/Resolving]
  - Hypoaesthesia [Not Recovered/Not Resolved]
  - Paraesthesia [Recovering/Resolving]
  - Impaired work ability [Recovering/Resolving]
  - Musculoskeletal stiffness [Recovering/Resolving]
  - Body temperature increased [Recovering/Resolving]

NARRATIVE: CASE EVENT DATE: 201506
